FAERS Safety Report 14708456 (Version 1)
Quarter: 2018Q2

REPORT INFORMATION
  Report Type: Spontaneous
  Country: US (occurrence: US)
  Receive Date: 20180403
  Receipt Date: 20180403
  Transmission Date: 20180711
  Serious: Yes (Death, Hospitalization, Other)
  Sender: FDA-Public Use
  Company Number: US-AUROBINDO-AUR-APL-2018-017565

PATIENT

DRUGS (1)
  1. DEXAMETHASONE. [Suspect]
     Active Substance: DEXAMETHASONE
     Indication: PRODUCT USED FOR UNKNOWN INDICATION

REACTIONS (11)
  - Thrombocytopenia [Unknown]
  - Strongyloidiasis [Fatal]
  - Respiratory failure [Unknown]
  - Hypotension [Unknown]
  - Hepatic enzyme increased [Unknown]
  - Sepsis [Unknown]
  - Tachycardia [Unknown]
  - Disorientation [Unknown]
  - Colitis [Unknown]
  - Tachypnoea [Unknown]
  - Shock [Unknown]
